FAERS Safety Report 10137827 (Version 2)
Quarter: 2014Q2

REPORT INFORMATION
  Report Type: Spontaneous
  Country: US (occurrence: US)
  Receive Date: 20140429
  Receipt Date: 20140429
  Transmission Date: 20141212
  Serious: No
  Sender: FDA-Public Use
  Company Number: US-MYLANLABS-2013S1007507

PATIENT
  Age: 68 Year
  Sex: Female

DRUGS (3)
  1. NITROFURANTOIN MONOHYDRATE/MACROCRYSTALS CAPSULES [Suspect]
     Indication: URINARY TRACT INFECTION
     Dosage: X7D
     Route: 048
     Dates: start: 20130329, end: 20130401
  2. ZOLOFT [Concomitant]
     Dosage: YEARS
     Route: 048
  3. CENTRUM [Concomitant]
     Dosage: 50 PLUS CHEWABLE
     Route: 048

REACTIONS (2)
  - Ocular hyperaemia [Recovered/Resolved]
  - Rash [Recovered/Resolved]
